FAERS Safety Report 5313076-4 (Version None)
Quarter: 2007Q2

REPORT INFORMATION
  Report Type: 
  Country: None (occurrence: None)
  Receive Date: 20070430
  Receipt Date: 20070418
  Transmission Date: 20071010
  Serious: Yes (Other)
  Sender: FDA-Public Use
  Company Number: US-PFIZER INC-2007031239

PATIENT
  Age: 73 Year
  Sex: Female

DRUGS (1)
  1. LYRICA [Suspect]
     Indication: POLYARTHRITIS
     Dosage: DAILY DOSE:150MG

REACTIONS (4)
  - DYSPNOEA [None]
  - INSOMNIA [None]
  - TACHYCARDIA [None]
  - WEIGHT INCREASED [None]
